FAERS Safety Report 7543275-2 (Version None)
Quarter: 2011Q2

REPORT INFORMATION
  Report Type: 
  Country: None (occurrence: None)
  Receive Date: 20110524
  Receipt Date: 20110215
  Transmission Date: 20111010
  Serious: No
  Sender: FDA-Public Use
  Company Number: 021527

PATIENT
  Sex: Female
  Weight: 52.1 kg

DRUGS (9)
  1. ACARBOSE [Concomitant]
  2. FEXOFENADINE [Concomitant]
  3. VITAMIN D [Concomitant]
  4. TRAZODONE HCL [Concomitant]
  5. CIMZIA [Suspect]
     Indication: CROHN'S DISEASE
     Dosage: 400 MG 1X/MONTH 0 WAS THE INDUCTION DOSE SUBCUTANEOUS 200 MG 1X/MONTH 2 SHOTS SUBCUTANEOUS
     Route: 058
     Dates: start: 20101104
  6. CIMZIA [Suspect]
     Indication: CROHN'S DISEASE
     Dosage: 400 MG 1X/MONTH 0 WAS THE INDUCTION DOSE SUBCUTANEOUS 200 MG 1X/MONTH 2 SHOTS SUBCUTANEOUS
     Route: 058
     Dates: start: 20101007
  7. CIMZIA [Suspect]
  8. VITAMIN B [Concomitant]
  9. FOSAMAX [Concomitant]

REACTIONS (21)
  - FEAR OF NEEDLES [None]
  - BALANCE DISORDER [None]
  - ABDOMINAL PAIN UPPER [None]
  - INJECTION SITE ERYTHEMA [None]
  - WEIGHT INCREASED [None]
  - FATIGUE [None]
  - INTESTINAL OBSTRUCTION [None]
  - PAIN [None]
  - ASTHENIA [None]
  - PELVIC PAIN [None]
  - DYSARTHRIA [None]
  - BLOOD IRON DECREASED [None]
  - ARTHRALGIA [None]
  - INTESTINAL STENOSIS [None]
  - DECREASED APPETITE [None]
  - GASTROINTESTINAL OBSTRUCTION [None]
  - DIARRHOEA [None]
  - DYSPNOEA [None]
  - CONSTIPATION [None]
  - LYMPHADENOPATHY [None]
  - OEDEMA PERIPHERAL [None]
